FAERS Safety Report 11137799 (Version 2)
Quarter: 2015Q2

REPORT INFORMATION
  Report Type: Spontaneous
  Country: CA (occurrence: CA)
  Receive Date: 20150526
  Receipt Date: 20150615
  Transmission Date: 20150821
  Serious: Yes (Other)
  Sender: FDA-Public Use
  Company Number: CA-PURDUE PHARMA-CAN-2015-0005794

PATIENT
  Age: 9 Year
  Sex: Male

DRUGS (5)
  1. BIPHENTIN 30 MG CAPSULE [Suspect]
     Active Substance: METHYLPHENIDATE
     Indication: ATTENTION DEFICIT/HYPERACTIVITY DISORDER
     Dosage: 30 MG, DAILY
     Route: 065
  2. MELATONIN [Concomitant]
     Active Substance: MELATONIN
     Indication: INSOMNIA
     Dosage: UNK
     Route: 065
  3. BIPHENTIN 10 MG CAPSULE [Suspect]
     Active Substance: METHYLPHENIDATE
     Indication: ATTENTION DEFICIT/HYPERACTIVITY DISORDER
     Dosage: 10 MG, DAILY
     Route: 065
  4. BIPHENTIN 40 MG CAPSULE [Suspect]
     Active Substance: METHYLPHENIDATE
     Indication: ATTENTION DEFICIT/HYPERACTIVITY DISORDER
     Dosage: 40 MG, DAILY
     Route: 065
     Dates: start: 201504, end: 201505
  5. BIPHENTIN 50 MG CAPSULE [Suspect]
     Active Substance: METHYLPHENIDATE
     Indication: ATTENTION DEFICIT/HYPERACTIVITY DISORDER
     Dosage: 50 MG, DAILY
     Route: 065
     Dates: start: 201505

REACTIONS (7)
  - Self injurious behaviour [Unknown]
  - Disturbance in attention [Unknown]
  - Aggression [Unknown]
  - Homicidal ideation [Unknown]
  - Product quality issue [Unknown]
  - Suicidal ideation [Unknown]
  - Drug ineffective [Unknown]

NARRATIVE: CASE EVENT DATE: 201504
